FAERS Safety Report 21120673 (Version 1)
Quarter: 2022Q3

REPORT INFORMATION
  Report Type: Report from Study
  Country: IN (occurrence: IN)
  Receive Date: 20220722
  Receipt Date: 20220722
  Transmission Date: 20221026
  Serious: Yes (Other)
  Sender: FDA-Public Use
  Company Number: IN-Merck Healthcare KGaA-9326723

PATIENT
  Sex: Male

DRUGS (2)
  1. CETUXIMAB [Suspect]
     Active Substance: CETUXIMAB
     Indication: Head and neck cancer metastatic
     Dosage: 500 MG, WEEKLY (1/W)
     Route: 042
     Dates: start: 20211007
  2. CETUXIMAB [Suspect]
     Active Substance: CETUXIMAB
     Dosage: 400 MG, WEEKLY (1/W)
     Route: 042

REACTIONS (2)
  - Jaw operation [Recovered/Resolved]
  - Weight decreased [Recovering/Resolving]

NARRATIVE: CASE EVENT DATE: 20220426
